FAERS Safety Report 20833896 (Version 1)
Quarter: 2022Q2

REPORT INFORMATION
  Report Type: 
  Country: None (occurrence: None)
  Receive Date: 20220516
  Receipt Date: 20220516
  Transmission Date: 20220720
  Serious: No
  Sender: FDA-Public Use
  Company Number: JP-CHUGAI-2022013710

PATIENT

DRUGS (2)
  1. CAPECITABINE [Suspect]
     Active Substance: CAPECITABINE
  2. OXALIPLATIN [Concomitant]
     Active Substance: OXALIPLATIN
     Dosage: UNK

REACTIONS (3)
  - Gastrointestinal necrosis [None]
  - Diarrhoea [None]
  - Palmar-plantar erythrodysaesthesia syndrome [None]
